FAERS Safety Report 6034066-2 (Version None)
Quarter: 2009Q1

REPORT INFORMATION
  Report Type: 
  Country: None (occurrence: None)
  Receive Date: 20090112
  Receipt Date: 20090107
  Transmission Date: 20090719
  Serious: Yes (Life-Threatening, Hospitalization, Other)
  Sender: FDA-Public Use
  Company Number: SE-AMGEN-UK321238

PATIENT
  Sex: Male

DRUGS (3)
  1. NEULASTA [Suspect]
     Indication: CHEMOTHERAPY
     Route: 058
     Dates: start: 20081115, end: 20081115
  2. UNSPECIFIED ANTINEOPLASTIC AGENT [Concomitant]
     Route: 065
  3. OMEPRAZOLE [Concomitant]
     Route: 048
     Dates: start: 20061118

REACTIONS (9)
  - ANAPHYLACTIC SHOCK [None]
  - ANGIOEDEMA [None]
  - DYSPNOEA [None]
  - ERYTHEMA [None]
  - HYPERSENSITIVITY [None]
  - NAUSEA [None]
  - OEDEMA MOUTH [None]
  - PRURITUS [None]
  - RASH [None]
